FAERS Safety Report 20642249 (Version 1)
Quarter: 2022Q1

REPORT INFORMATION
  Report Type: Spontaneous
  Country: None (occurrence: US)
  Receive Date: 20220328
  Receipt Date: 20220328
  Transmission Date: 20220423
  Serious: Yes (Hospitalization)
  Sender: FDA-Public Use
  Company Number: US-Y-mAbs Therapeutics-2127154

PATIENT
  Age: 5 Year
  Sex: Male

DRUGS (7)
  1. DANYELZA [Suspect]
     Active Substance: NAXITAMAB-GQGK
     Indication: Neuroblastoma
     Route: 042
     Dates: start: 20220311, end: 20220311
  2. LEUKINE [Concomitant]
     Active Substance: SARGRAMOSTIM
  3. DIPHENHYDRAMINE HYDROCHLORIDE [Concomitant]
     Active Substance: DIPHENHYDRAMINE HYDROCHLORIDE
  4. OXYGEN [Concomitant]
     Active Substance: OXYGEN
  5. METHYLPREDNISOLONE [Concomitant]
     Active Substance: METHYLPREDNISOLONE
  6. ALBUTEROL [Concomitant]
     Active Substance: ALBUTEROL
  7. CITRIC BUFFERED NORMAL SALINE [Concomitant]
     Active Substance: ANHYDROUS CITRIC ACID

REACTIONS (4)
  - Hypotension [Unknown]
  - Urticaria [Unknown]
  - Rash [Unknown]
  - Oxygen saturation decreased [Recovered/Resolved]

NARRATIVE: CASE EVENT DATE: 20220311
